FAERS Safety Report 9929528 (Version 2)
Quarter: 2014Q2

REPORT INFORMATION
  Report Type: Spontaneous
  Country: US (occurrence: US)
  Receive Date: 20140227
  Receipt Date: 20140512
  Transmission Date: 20141212
  Serious: No
  Sender: FDA-Public Use
  Company Number: US-009507513-1402USA011933

PATIENT
  Age: 66 Year
  Sex: Female
  Weight: 68.27 kg

DRUGS (1)
  1. OXYTROL FOR WOMEN [Suspect]
     Indication: HYPERTONIC BLADDER
     Dosage: UNK, UNKNOWN
     Route: 062
     Dates: start: 20140131, end: 20140204

REACTIONS (6)
  - Application site burn [Recovered/Resolved]
  - Application site urticaria [Unknown]
  - Blister [Unknown]
  - Skin irritation [Unknown]
  - Erythema [Recovered/Resolved]
  - Pruritus [Recovered/Resolved]
